FAERS Safety Report 19452950 (Version 3)
Quarter: 2021Q4

REPORT INFORMATION
  Report Type: Spontaneous
  Country: GB (occurrence: GB)
  Receive Date: 20210623
  Receipt Date: 20211126
  Transmission Date: 20220303
  Serious: Yes (Other)
  Sender: FDA-Public Use
  Company Number: GB-ORGANON-O2106GBR001432

PATIENT
  Age: 37 Year
  Sex: Female
  Weight: 70 kg

DRUGS (7)
  1. NEXPLANON [Suspect]
     Active Substance: ETONOGESTREL
     Indication: Contraception
     Dosage: 1 IMPLANT
     Route: 059
     Dates: start: 20180629, end: 20210514
  2. NEXPLANON [Suspect]
     Active Substance: ETONOGESTREL
     Indication: Contraception
     Dosage: 1 DOSAGE FORM
     Route: 059
     Dates: start: 20210514
  3. FOLIC ACID [Concomitant]
     Active Substance: FOLIC ACID
     Dosage: 5MG DAILY
  4. TEGRETOL [Concomitant]
     Active Substance: CARBAMAZEPINE
     Dosage: 200MG BD
  5. APIXABAN [Concomitant]
     Active Substance: APIXABAN
     Dosage: 2.5MG BD
  6. QUETIAPINE [Concomitant]
     Active Substance: QUETIAPINE
     Dosage: 25MG TDS
  7. DESOGESTREL [Concomitant]
     Active Substance: DESOGESTREL
     Dosage: PILL
     Route: 048

REACTIONS (6)
  - Pregnancy with implant contraceptive [Recovered/Resolved]
  - Unintended pregnancy [Recovered/Resolved]
  - Abortion induced [Unknown]
  - Nausea [Unknown]
  - Abdominal discomfort [Unknown]
  - Menstruation irregular [Not Recovered/Not Resolved]

NARRATIVE: CASE EVENT DATE: 20210101
